FAERS Safety Report 8824846 (Version 2)
Quarter: 2012Q4

REPORT INFORMATION
  Report Type: 
  Country: FR (occurrence: FR)
  Receive Date: 20121004
  Receipt Date: 20121129
  Transmission Date: 20130627
  Serious: Yes (Death)
  Sender: FDA-Public Use
  Company Number: FR-SHIRE-ALL1-2012-04639

PATIENT
  Age: 52 Year
  Sex: Male

DRUGS (4)
  1. PULMICORT [Concomitant]
     Indication: CARDIAC VALVE DISEASE
     Dosage: UNK, Unknown
     Route: 065
  2. SYMBICORT [Concomitant]
     Indication: CARDIAC VALVE DISEASE
     Dosage: UNK, Unknown
     Route: 065
  3. IDURSULFASE [Suspect]
     Indication: MUCOPOLYSACCHARIDOSIS II
     Dosage: 30 mg, 1x/week
     Route: 041
     Dates: start: 20071015
  4. PROCORALAN [Concomitant]
     Indication: CARDIAC VALVE DISEASE
     Dosage: UNK, Unknown
     Route: 065

REACTIONS (1)
  - Cardio-respiratory arrest [Fatal]
